FAERS Safety Report 25536449 (Version 2)
Quarter: 2025Q4

REPORT INFORMATION
  Report Type: Spontaneous
  Country: US (occurrence: US)
  Receive Date: 20250709
  Receipt Date: 20251125
  Transmission Date: 20260117
  Serious: Yes (Life-Threatening, Hospitalization, Other)
  Sender: BOEHRINGER INGELHEIM
  Company Number: US-BoehringerIngelheim-2025-BI-081867

PATIENT
  Age: 72 Year
  Sex: Female

DRUGS (5)
  1. SPESOLIMAB [Suspect]
     Active Substance: SPESOLIMAB
     Indication: Generalised pustular psoriasis
     Dosage: DAY 4
  2. SPESOLIMAB [Suspect]
     Active Substance: SPESOLIMAB
     Dosage: DAY 10
  3. SPESOLIMAB [Suspect]
     Active Substance: SPESOLIMAB
     Indication: Generalised pustular psoriasis
  4. CLOBETASOL [Concomitant]
     Active Substance: CLOBETASOL
  5. TRIAMCINOLONE [Concomitant]
     Active Substance: TRIAMCINOLONE

REACTIONS (7)
  - Distributive shock [Recovering/Resolving]
  - Pulmonary oedema [Recovered/Resolved]
  - Acute kidney injury [Recovered/Resolved]
  - General physical health deterioration [Unknown]
  - Leukaemoid reaction [Recovered/Resolved]
  - Blood lactic acid increased [Recovered/Resolved]
  - Hypothermia [Recovered/Resolved]
